FAERS Safety Report 18974999 (Version 1)
Quarter: 2021Q1

REPORT INFORMATION
  Report Type: Spontaneous
  Country: NL (occurrence: NL)
  Receive Date: 20210305
  Receipt Date: 20210305
  Transmission Date: 20210420
  Serious: Yes (Other)
  Sender: FDA-Public Use
  Company Number: NL-TEVA-2021-NL-1886705

PATIENT
  Age: 24 Year
  Sex: Female
  Weight: 118 kg

DRUGS (5)
  1. RIFAMPICINE CAPSULE 300MG / BRAND NAME NOT SPECIFIED [Suspect]
     Active Substance: RIFAMPIN
     Dosage: 600 MILLIGRAM DAILY; THERAPY END DATE : ASKED BUT UNKNOWN
     Dates: start: 2012
  2. OMEPRAZOL CAPSULE MSR 20MG / BPH MAAGZUURREMMENDE CAPS OMEPRAZOL CAPS [Concomitant]
     Dosage: 20 MG (MILLIGRAM) , THERAPY START DATE AND END DATE : ASKED BUT UNKNOWN
  3. FLUOXETINE DISPERTABLET 20MG / PROZAC DISP TABLET 20MG [Concomitant]
     Dosage: 20 MG (MILLIGRAM) , THERAPY START DATE AND END DATE : ASKED BUT UNKNOWN
  4. METHYLFENIDAAT TABLET MGA 36MG / CONCERTA TABLET MVA 36MG [Concomitant]
     Dosage: 36 MG (MILLIGRAM) , THERAPY START DATE AND END DATE : ASKED BUT UNKNOWN
  5. CLINDAMYCINE CAPSULE 300MG / BRAND NAME NOT SPECIFIED [Suspect]
     Active Substance: CLINDAMYCIN HYDROCHLORIDE
     Dosage: 600 MILLIGRAM DAILY; THERAPY END DATE : ASKED BUT UNKNOWN
     Dates: start: 20210121

REACTIONS (1)
  - Nephrolithiasis [Not Recovered/Not Resolved]

NARRATIVE: CASE EVENT DATE: 20210126
